FAERS Safety Report 4282309-8 (Version None)
Quarter: 2004Q1

REPORT INFORMATION
  Report Type: 
  Country: None (occurrence: None)
  Receive Date: 20040112
  Receipt Date: 20030930
  Transmission Date: 20041129
  Serious: Yes (Hospitalization)
  Sender: FDA-Public Use
  Company Number: 345131

PATIENT
  Age: 52 Year
  Sex: Male
  Weight: 49 kg

DRUGS (9)
  1. FUZEON [Suspect]
     Indication: HIV INFECTION
     Dosage: SUBCUTANEOUS
     Route: 058
     Dates: start: 20030401, end: 20030922
  2. ZITHROMAX [Concomitant]
  3. RITALIN [Concomitant]
  4. KALETRA (LOPINAVIR/RITNOAVIR) [Interacting]
  5. PREDNISONE [Concomitant]
  6. VIREAD [Concomitant]
  7. FLUCONAZOLE [Concomitant]
  8. ETHAMBUTOL (THAMBUTOL HYDROCHLORIDE) [Concomitant]
  9. VALGANCICLOVIR (VALGANCILOVIR0 [Concomitant]

REACTIONS (7)
  - HYPOKALAEMIA [None]
  - INJECTION SITE REACTION [None]
  - LIP ULCERATION [None]
  - MASS [None]
  - NEUTROPENIA [None]
  - PLATELET COUNT DECREASED [None]
  - RECTAL ULCER [None]
